FAERS Safety Report 9311857 (Version 1)
Quarter: 2013Q2

REPORT INFORMATION
  Report Type: Spontaneous
  Country: US (occurrence: US)
  Receive Date: 20130528
  Receipt Date: 20130528
  Transmission Date: 20140414
  Serious: Yes (Hospitalization)
  Sender: FDA-Public Use
  Company Number: PHHY2013US051055

PATIENT
  Age: 58 Year
  Sex: Male

DRUGS (7)
  1. METFORMIN [Suspect]
  2. ALISKIREN [Concomitant]
  3. TELMISARTAN [Concomitant]
  4. HYDROCHLOROTHIAZIDE [Concomitant]
  5. NAPROXEN [Concomitant]
  6. EZETIMIBE [Concomitant]
  7. SIMVASTATIN [Concomitant]

REACTIONS (1)
  - Nephropathy toxic [Recovering/Resolving]
